FAERS Safety Report 9950115 (Version 2)
Quarter: 2014Q1

REPORT INFORMATION
  Report Type: Report from Study
  Country: US (occurrence: US)
  Receive Date: 20140304
  Receipt Date: 20140304
  Transmission Date: 20141002
  Serious: Yes (Hospitalization)
  Sender: FDA-Public Use
  Company Number: US-ABBVIE-13P-163-1057121-00

PATIENT
  Age: 20 Year
  Sex: Female

DRUGS (9)
  1. HUMIRA [Suspect]
     Indication: CROHN^S DISEASE
     Dates: start: 20121228, end: 20121228
  2. HUMIRA [Suspect]
     Dates: start: 20130111, end: 20130111
  3. HUMIRA [Suspect]
  4. HUMIRA [Suspect]
  5. METHOTREXATE [Concomitant]
     Indication: PRODUCT USED FOR UNKNOWN INDICATION
     Route: 048
  6. METHOTREXATE [Concomitant]
     Dosage: TITRATING DOSING TO REACH FULL DOSE
     Route: 058
  7. FOLIC ACID [Concomitant]
     Indication: PRODUCT USED FOR UNKNOWN INDICATION
  8. COLAZOL [Concomitant]
     Indication: PRODUCT USED FOR UNKNOWN INDICATION
     Dosage: 750 MG 6 TABLETS TWICE A DAY
     Dates: end: 20130227
  9. MICROGESTIN [Concomitant]
     Indication: ORAL CONTRACEPTION
     Route: 048

REACTIONS (6)
  - Abdominal pain [Recovering/Resolving]
  - Diarrhoea [Unknown]
  - Crohn^s disease [Unknown]
  - Flatulence [Unknown]
  - Abdominal distension [Unknown]
  - Gastrooesophageal reflux disease [Unknown]
